FAERS Safety Report 8141109-9 (Version None)
Quarter: 2012Q1

REPORT INFORMATION
  Report Type: 
  Country: None (occurrence: None)
  Receive Date: 20120216
  Receipt Date: 20120213
  Transmission Date: 20120608
  Serious: Yes (Life-Threatening)
  Sender: FDA-Public Use
  Company Number: IT-SANOFI-AVENTIS-2011SA085111

PATIENT
  Age: 14 Year
  Sex: Male

DRUGS (8)
  1. RIFADIN [Suspect]
     Route: 048
     Dates: start: 20111027, end: 20111124
  2. ACETAMINOPHEN [Concomitant]
     Route: 065
  3. ISONIAZID [Suspect]
     Route: 048
     Dates: start: 20111027, end: 20111124
  4. AUGMENTIN '125' [Concomitant]
     Route: 065
  5. ALLOPURINOL [Concomitant]
     Route: 065
  6. PREDNISONE TAB [Concomitant]
     Route: 065
  7. ETHAMBUTOL HYDROCHLORIDE [Suspect]
     Route: 048
     Dates: start: 20111027, end: 20111124
  8. PYRAZINAMIDE [Suspect]
     Route: 048
     Dates: start: 20111027, end: 20111124

REACTIONS (1)
  - ACUTE HEPATIC FAILURE [None]
